FAERS Safety Report 17088638 (Version 1)
Quarter: 2019Q4

REPORT INFORMATION
  Report Type: Spontaneous
  Country: US (occurrence: US)
  Receive Date: 20191031
  Receipt Date: 20191031
  Transmission Date: 20200122
  Serious: Yes (Life-Threatening, Hospitalization, Other)
  Sender: FDA-Public Use
  Company Number: None

PATIENT
  Age: 52 Year
  Sex: Female

DRUGS (14)
  1. HYDROXYZINE [Concomitant]
     Active Substance: HYDROXYZINE HYDROCHLORIDE
  2. MAG-OX [Concomitant]
     Active Substance: MAGNESIUM OXIDE
  3. OMEPRAZOLE. [Concomitant]
     Active Substance: OMEPRAZOLE
  4. GLATIRAMER 20MG PFS INJ (30/BOX) [Suspect]
     Active Substance: GLATIRAMER
     Route: 058
     Dates: start: 201806
  5. CLONAZEPAM. [Concomitant]
     Active Substance: CLONAZEPAM
  6. TYLENOL [Concomitant]
     Active Substance: ACETAMINOPHEN
  7. YUVAFEM [Concomitant]
     Active Substance: ESTRADIOL HEMIHYDRATE
  8. ASPIRIN. [Concomitant]
     Active Substance: ASPIRIN
  9. OXYBUTYNIN. [Concomitant]
     Active Substance: OXYBUTYNIN CHLORIDE
  10. BACLOFEN. [Concomitant]
     Active Substance: BACLOFEN
  11. METHENAMINE [Concomitant]
     Active Substance: METHENAMINE
  12. VRAYLAR [Concomitant]
     Active Substance: CARIPRAZINE
  13. VITAMIN D [Concomitant]
     Active Substance: VITAMIN D NOS
  14. METFORMIN [Concomitant]
     Active Substance: METFORMIN HYDROCHLORIDE

REACTIONS (1)
  - Acute kidney injury [None]

NARRATIVE: CASE EVENT DATE: 20191031
